FAERS Safety Report 22012834 (Version 2)
Quarter: 2023Q1

REPORT INFORMATION
  Report Type: Spontaneous
  Country: US (occurrence: US)
  Receive Date: 20230220
  Receipt Date: 20230223
  Transmission Date: 20230418
  Serious: No
  Sender: FDA-Public Use
  Company Number: US-BRISTOL-MYERS SQUIBB COMPANY-2023-024859

PATIENT
  Age: 74 Year
  Sex: Male

DRUGS (1)
  1. LENALIDOMIDE [Suspect]
     Active Substance: LENALIDOMIDE
     Indication: Plasma cell myeloma
     Dosage: FREQUENCY CYCLE: TAKE 1 CAPSULE BY MOUTH WHOLE W OR W/OUT FOOD DAILY ON DAYS 1-14 FOLLOWED BY 7 DAYS
     Route: 048

REACTIONS (4)
  - Illness [Unknown]
  - Cough [Unknown]
  - Off label use [Unknown]
  - Viral infection [Unknown]
